FAERS Safety Report 25398980 (Version 2)
Quarter: 2025Q3

REPORT INFORMATION
  Report Type: Spontaneous
  Country: EU (occurrence: EU)
  Receive Date: 20250605
  Receipt Date: 20250708
  Transmission Date: 20251021
  Serious: Yes (Hospitalization, Other)
  Sender: ASTELLAS
  Company Number: EU-ASTELLAS-2025-AER-029341

PATIENT
  Age: 59 Year
  Sex: Male

DRUGS (3)
  1. TACROLIMUS [Suspect]
     Active Substance: TACROLIMUS
     Indication: Heart and lung transplant
     Route: 065
     Dates: start: 2001
  2. TACROLIMUS [Suspect]
     Active Substance: TACROLIMUS
     Indication: Renal transplant
     Route: 065
     Dates: start: 2017
  3. MYCOPHENOLIC ACID [Concomitant]
     Active Substance: MYCOPHENOLIC ACID
     Indication: Heart and lung transplant
     Route: 065
     Dates: start: 2001

REACTIONS (4)
  - Chronic kidney disease [Recovered/Resolved]
  - Toxicity to various agents [Unknown]
  - Bronchopulmonary aspergillosis [Unknown]
  - Off label use [Unknown]

NARRATIVE: CASE EVENT DATE: 20010101
